FAERS Safety Report 9681840 (Version 2)
Quarter: 2013Q4

REPORT INFORMATION
  Report Type: Spontaneous
  Country: US (occurrence: US)
  Receive Date: 20131111
  Receipt Date: 20131212
  Transmission Date: 20140711
  Serious: No
  Sender: FDA-Public Use
  Company Number: US-PFIZER INC-2013320199

PATIENT
  Sex: Male

DRUGS (1)
  1. NEURONTIN [Suspect]
     Indication: DIABETIC NEUROPATHY
     Dosage: 100 MG, 3X/DAY
     Route: 048
     Dates: start: 20130722, end: 20131029

REACTIONS (5)
  - Off label use [Unknown]
  - Dizziness [Recovered/Resolved]
  - Feeling drunk [Unknown]
  - Gastric disorder [Unknown]
  - Headache [Recovered/Resolved]
